FAERS Safety Report 24113870 (Version 1)
Quarter: 2024Q3

REPORT INFORMATION
  Report Type: Spontaneous
  Country: CA (occurrence: CA)
  Receive Date: 20240720
  Receipt Date: 20240720
  Transmission Date: 20241017
  Serious: Yes (Hospitalization, Other)
  Sender: CELLTRION
  Company Number: CA-CELLTRION INC.-2024CA016829

PATIENT

DRUGS (1)
  1. TRASTUZUMAB [Suspect]
     Active Substance: TRASTUZUMAB
     Indication: HER2 positive breast cancer
     Dosage: 562 MG, 1 EVERY 3 WEEKS
     Route: 042

REACTIONS (9)
  - Dysuria [Recovering/Resolving]
  - Pulmonary thrombosis [Recovering/Resolving]
  - Decreased appetite [Recovering/Resolving]
  - Fatigue [Recovering/Resolving]
  - Neuropathy peripheral [Recovering/Resolving]
  - Paraesthesia oral [Recovering/Resolving]
  - Weight decreased [Recovering/Resolving]
  - Off label use [Recovering/Resolving]
  - Underdose [Unknown]
